FAERS Safety Report 4720594-6 (Version None)
Quarter: 2005Q3

REPORT INFORMATION
  Report Type: 
  Country: None (occurrence: None)
  Receive Date: 20050719
  Receipt Date: 20050705
  Transmission Date: 20060218
  Serious: Yes (Hospitalization, Other)
  Sender: FDA-Public Use
  Company Number: 2005BI012738

PATIENT
  Age: 50 Year
  Sex: Female
  Weight: 83.0083 kg

DRUGS (3)
  1. AVONEX [Suspect]
     Indication: MULTIPLE SCLEROSIS
     Dosage: 30 UG; QW; IM
     Route: 030
     Dates: start: 20000101, end: 20030801
  2. AVONEX [Suspect]
     Indication: MULTIPLE SCLEROSIS
     Dosage: 30 UG; QW; IM
     Route: 030
     Dates: start: 20030801
  3. FELDENE [Concomitant]

REACTIONS (16)
  - ABASIA [None]
  - APHASIA [None]
  - CHILLS [None]
  - CONDITION AGGRAVATED [None]
  - DIZZINESS [None]
  - FATIGUE [None]
  - HEADACHE [None]
  - HEPATOCELLULAR DAMAGE [None]
  - INFLUENZA LIKE ILLNESS [None]
  - JAUNDICE [None]
  - MULTIPLE SCLEROSIS [None]
  - MYALGIA [None]
  - NEPHROLITHIASIS [None]
  - PYREXIA [None]
  - RENAL CYST [None]
  - VOMITING [None]
